FAERS Safety Report 21426240 (Version 2)
Quarter: 2022Q4

REPORT INFORMATION
  Report Type: Report from Study
  Country: US (occurrence: US)
  Receive Date: 20221008
  Receipt Date: 20221220
  Transmission Date: 20230113
  Serious: Yes (Hospitalization, Other)
  Sender: FDA-Public Use
  Company Number: US-ABBVIE-4142429

PATIENT
  Age: 76 Year
  Sex: Male

DRUGS (2)
  1. SKYRIZI [Suspect]
     Active Substance: RISANKIZUMAB-RZAA
     Indication: Psoriasis
     Dosage: WEEK 0?STRENGTH: 150 MILLIGRAM/MILLILITERS?DRUG END DATE TEXT 2022
     Route: 058
     Dates: start: 20220804
  2. SKYRIZI [Suspect]
     Active Substance: RISANKIZUMAB-RZAA
     Dosage: WEEK 4, THEN EVERY 12 WEEKS THEREAFTER.?STRENGTH: 150 MILLIGRAM/MILLILITERS
     Route: 058
     Dates: start: 202212

REACTIONS (4)
  - Prostatomegaly [Unknown]
  - Device issue [Unknown]
  - Psoriasis [Recovered/Resolved]
  - Therapeutic response shortened [Unknown]

NARRATIVE: CASE EVENT DATE: 20221201
